FAERS Safety Report 4487664-1 (Version None)
Quarter: 2004Q4

REPORT INFORMATION
  Report Type: 
  Country: None (occurrence: None)
  Receive Date: 20041025
  Receipt Date: 20041011
  Transmission Date: 20050328
  Serious: No
  Sender: FDA-Public Use
  Company Number: 2004-120605-NL

PATIENT
  Sex: Female

DRUGS (1)
  1. NUVARING [Suspect]
     Indication: CONTRACEPTION
     Dosage: DF VAGINAL
     Route: 067
     Dates: start: 20040218

REACTIONS (2)
  - BLOOD PRESSURE SYSTOLIC DECREASED [None]
  - VAGINAL INFECTION [None]
